FAERS Safety Report 11029556 (Version 1)
Quarter: 2015Q2

REPORT INFORMATION
  Report Type: Spontaneous
  Country: US (occurrence: US)
  Receive Date: 20150415
  Receipt Date: 20150415
  Transmission Date: 20150821
  Serious: Yes (Other)
  Sender: FDA-Public Use
  Company Number: US-ELI_LILLY_AND_COMPANY-US201504002328

PATIENT
  Sex: Male

DRUGS (1)
  1. CYMBALTA [Suspect]
     Active Substance: DULOXETINE HYDROCHLORIDE
     Indication: NEUROPATHY PERIPHERAL
     Dosage: UNK UNK, UNKNOWN
     Route: 065
     Dates: start: 201302, end: 201304

REACTIONS (17)
  - Off label use [Recovered/Resolved]
  - Suicidal ideation [Unknown]
  - Nightmare [Unknown]
  - Sleep terror [Unknown]
  - Suicidal behaviour [Unknown]
  - Drug withdrawal syndrome [Unknown]
  - Mood swings [Unknown]
  - Sleep disorder [Unknown]
  - Insomnia [Unknown]
  - Vertigo [Unknown]
  - Diarrhoea [Unknown]
  - Paraesthesia [Unknown]
  - Chills [Unknown]
  - Nausea [Unknown]
  - Dizziness [Unknown]
  - Agitation [Unknown]
  - Irritability [Unknown]
